FAERS Safety Report 25283563 (Version 1)
Quarter: 2025Q2

REPORT INFORMATION
  Report Type: Spontaneous
  Country: FR (occurrence: FR)
  Receive Date: 20250508
  Receipt Date: 20250508
  Transmission Date: 20250716
  Serious: Yes (Death, Other)
  Sender: HIKMA
  Company Number: None

PATIENT
  Sex: Female

DRUGS (2)
  1. CARBOPLATIN [Suspect]
     Active Substance: CARBOPLATIN
     Indication: Product administration error
     Route: 042
     Dates: start: 20250110, end: 20250110
  2. CISPLATIN [Concomitant]
     Active Substance: CISPLATIN
     Indication: Neoplasm malignant
     Route: 042
     Dates: start: 20250110, end: 20250110

REACTIONS (2)
  - Pancytopenia [Fatal]
  - Wrong product administered [Fatal]

NARRATIVE: CASE EVENT DATE: 20250110
